FAERS Safety Report 8768986 (Version 2)
Quarter: 2013Q4

REPORT INFORMATION
  Report Type: Spontaneous
  Country: US (occurrence: US)
  Receive Date: 20120904
  Receipt Date: 20131031
  Transmission Date: 20140711
  Serious: Yes (Hospitalization)
  Sender: FDA-Public Use
  Company Number: US-009507513-1208USA011850

PATIENT
  Age: 50 Year
  Sex: Male

DRUGS (1)
  1. SINEMET [Suspect]
     Indication: PARKINSON^S DISEASE
     Dosage: 1 DF, QD:2/3 HOURS
     Dates: start: 2008

REACTIONS (2)
  - Dependence [Recovered/Resolved]
  - Overdose [Unknown]
